FAERS Safety Report 21919847 (Version 1)
Quarter: 2023Q1

REPORT INFORMATION
  Report Type: Spontaneous
  Country: US (occurrence: US)
  Receive Date: 20230127
  Receipt Date: 20230127
  Transmission Date: 20230417
  Serious: No
  Sender: FDA-Public Use
  Company Number: US-009507513-2301USA008870

PATIENT
  Sex: Female
  Weight: 69.841 kg

DRUGS (3)
  1. KEYTRUDA [Suspect]
     Active Substance: PEMBROLIZUMAB
     Dosage: UNK
  2. LENVATINIB MESYLATE [Suspect]
     Active Substance: LENVATINIB MESYLATE
     Indication: Renal cancer metastatic
     Dosage: 20 MG BY MOUTH DAILY
     Route: 048
     Dates: start: 20221224
  3. PROBIOTIC BLEND [Concomitant]

REACTIONS (4)
  - Oral pain [Unknown]
  - Glossitis [Unknown]
  - Tongue discomfort [Unknown]
  - Glossodynia [Unknown]
